FAERS Safety Report 10229387 (Version 1)
Quarter: 2014Q2

REPORT INFORMATION
  Report Type: Spontaneous
  Country: DK (occurrence: DK)
  Receive Date: 20140611
  Receipt Date: 20140611
  Transmission Date: 20141212
  Serious: Yes (Hospitalization, Disabling, Other)
  Sender: FDA-Public Use
  Company Number: DK-MERCK-1406DNK004004

PATIENT
  Age: 62 Year
  Sex: Female

DRUGS (4)
  1. FOSAMAX UGETABLET [Suspect]
     Indication: OSTEOPOROSIS
     Dosage: 70 MILLIGRAMS ONCE WEEKLY (EVERY MONDAY)
     Route: 048
     Dates: start: 200108, end: 20110812
  2. UNIKALK BASIC [Concomitant]
     Indication: OSTEOPOROSIS
     Dosage: UNK
  3. VITAMIN D (UNSPECIFIED) [Concomitant]
     Indication: OSTEOPOROSIS
     Dosage: ONE TABLET TWICE DAILY
  4. SEROQUEL [Concomitant]
     Indication: PSYCHOTIC DISORDER

REACTIONS (13)
  - Femur fracture [Not Recovered/Not Resolved]
  - Femur fracture [Not Recovered/Not Resolved]
  - Internal fixation of fracture [Unknown]
  - Internal fixation of fracture [Unknown]
  - Internal fixation of fracture [Unknown]
  - Pseudarthrosis [Unknown]
  - Limb asymmetry [Unknown]
  - Mobility decreased [Unknown]
  - Fall [Unknown]
  - Fall [Unknown]
  - Pain in extremity [Not Recovered/Not Resolved]
  - Arthralgia [Not Recovered/Not Resolved]
  - Wound [Unknown]
